FAERS Safety Report 12646264 (Version 1)
Quarter: 2016Q3

REPORT INFORMATION
  Report Type: Spontaneous
  Country: US (occurrence: US)
  Receive Date: 20160811
  Receipt Date: 20160811
  Transmission Date: 20161109
  Serious: No
  Sender: FDA-Public Use
  Company Number: US-009507513-1607USA006014

PATIENT
  Age: 68 Year
  Sex: Male
  Weight: 90.7 kg

DRUGS (10)
  1. ASCORBIC ACID. [Concomitant]
     Active Substance: ASCORBIC ACID
  2. TAMSULOSIN HYDROCHLORIDE. [Concomitant]
     Active Substance: TAMSULOSIN HYDROCHLORIDE
     Route: 061
  3. TURMERIC [Concomitant]
     Active Substance: TURMERIC
  4. OMEPRAZOLE. [Concomitant]
     Active Substance: OMEPRAZOLE
  5. BELSOMRA [Suspect]
     Active Substance: SUVOREXANT
     Indication: INSOMNIA
     Dosage: UNK
     Route: 048
     Dates: start: 201605, end: 20160710
  6. VITAMINS (UNSPECIFIED) [Concomitant]
     Active Substance: VITAMINS
  7. PROBIOTICS (UNSPECIFIED) [Concomitant]
     Active Substance: PROBIOTICS NOS
  8. OMEGA-3 MARINE TRIGLYCERIDES [Concomitant]
     Active Substance: FISH OIL
  9. CALCIUM (UNSPECIFIED) (+) MAGNESIUM (UNSPECIFIED) (+) ZINC (UNSPECIFIE [Concomitant]
  10. QVAR [Concomitant]
     Active Substance: BECLOMETHASONE DIPROPIONATE

REACTIONS (12)
  - Agitation [Unknown]
  - Feeling abnormal [Not Recovered/Not Resolved]
  - Food craving [Unknown]
  - Middle insomnia [Unknown]
  - Somnolence [Unknown]
  - Lethargy [Unknown]
  - Thinking abnormal [Unknown]
  - Feeling abnormal [Unknown]
  - Depression [Unknown]
  - Depressed mood [Unknown]
  - Asthenia [Unknown]
  - Aphasia [Unknown]

NARRATIVE: CASE EVENT DATE: 201605
